FAERS Safety Report 24549282 (Version 4)
Quarter: 2025Q2

REPORT INFORMATION
  Report Type: Report from Study
  Country: US (occurrence: US)
  Receive Date: 20241025
  Receipt Date: 20250630
  Transmission Date: 20250717
  Serious: Yes (Hospitalization, Other)
  Sender: EMD SERONO INC
  Company Number: US-Merck Healthcare KGaA-2024055831

PATIENT
  Sex: Female

DRUGS (3)
  1. MAVENCLAD [Suspect]
     Active Substance: CLADRIBINE
     Indication: Multiple sclerosis
  2. MAVENCLAD [Suspect]
     Active Substance: CLADRIBINE
  3. BOTOX [Concomitant]
     Active Substance: ONABOTULINUMTOXINA
     Indication: Neurogenic bladder

REACTIONS (4)
  - Sepsis [Unknown]
  - Lymphocyte count decreased [Unknown]
  - Neurogenic bladder [Not Recovered/Not Resolved]
  - Hepatic enzyme increased [Recovered/Resolved]
